FAERS Safety Report 6599496-9 (Version None)
Quarter: 2010Q1

REPORT INFORMATION
  Report Type: 
  Country: None (occurrence: None)
  Receive Date: 20100224
  Receipt Date: 20100212
  Transmission Date: 20100710
  Serious: No
  Sender: FDA-Public Use
  Company Number: US-B.I. PHARMACEUTICALS,INC./RIDGEFIELD-2010-BP-01741BP

PATIENT
  Age: 61 Year
  Sex: Male

DRUGS (4)
  1. MIRAPEX [Suspect]
     Indication: PARKINSON'S DISEASE
     Dosage: 6 MG
     Route: 048
     Dates: start: 20050101, end: 20091101
  2. AMANTADINE HCL [Concomitant]
     Indication: PARKINSON'S DISEASE
  3. SINEMET [Concomitant]
     Indication: PARKINSON'S DISEASE
  4. TASMAR [Concomitant]
     Indication: PARKINSON'S DISEASE

REACTIONS (3)
  - ABNORMAL BEHAVIOUR [None]
  - ECONOMIC PROBLEM [None]
  - QUALITY OF LIFE DECREASED [None]
